FAERS Safety Report 4630933-2 (Version None)
Quarter: 2005Q2

REPORT INFORMATION
  Report Type: 
  Country: None (occurrence: None)
  Receive Date: 20050407
  Receipt Date: 20050407
  Transmission Date: 20051028
  Serious: Yes (Hospitalization)
  Sender: FDA-Public Use
  Company Number: None

PATIENT
  Age: 78 Year
  Sex: Male
  Weight: 67.1 kg

DRUGS (1)
  1. RISPERIDONE [Suspect]
     Indication: MENTAL DISORDER
     Dosage: 4MG, 2MG BID, ORAL
     Route: 048
     Dates: start: 20050304, end: 20050314

REACTIONS (1)
  - WHITE BLOOD CELL COUNT DECREASED [None]
